FAERS Safety Report 9030577 (Version 1)
Quarter: 2013Q1

REPORT INFORMATION
  Report Type: Spontaneous
  Country: US (occurrence: US)
  Receive Date: 20130122
  Receipt Date: 20130122
  Transmission Date: 20140127
  Serious: Yes (Death)
  Sender: FDA-Public Use
  Company Number: PHEH2013US001830

PATIENT
  Age: 88 Year
  Sex: Female

DRUGS (1)
  1. RECLAST [Suspect]
     Dosage: 5 MG, 12 MONTHS FREQUENCY
     Route: 042
     Dates: start: 20111201

REACTIONS (1)
  - Death [Fatal]
